FAERS Safety Report 7851391-0 (Version None)
Quarter: 2011Q4

REPORT INFORMATION
  Report Type: 
  Country: None (occurrence: None)
  Receive Date: 20111026
  Receipt Date: 20111019
  Transmission Date: 20120403
  Serious: Yes (Other)
  Sender: FDA-Public Use
  Company Number: CN-JNJFOC-20111009560

PATIENT
  Age: 6 Year
  Sex: Male

DRUGS (2)
  1. TOPAMAX [Suspect]
     Indication: EPILEPSY
     Route: 048
     Dates: start: 20110706
  2. TOPAMAX [Suspect]
     Route: 048

REACTIONS (2)
  - ASTIGMATISM [None]
  - AMBLYOPIA [None]
